FAERS Safety Report 8452544-3 (Version None)
Quarter: 2012Q2

REPORT INFORMATION
  Report Type: 
  Country: None (occurrence: None)
  Receive Date: 20120620
  Receipt Date: 20120414
  Transmission Date: 20120825
  Serious: No
  Sender: FDA-Public Use
  Company Number: US-VERTEX PHARMACEUTICALS INC.-AE-2012-005434

PATIENT
  Sex: Female
  Weight: 83.082 kg

DRUGS (7)
  1. PEG-INTRON [Concomitant]
     Indication: HEPATITIS C
     Route: 058
     Dates: start: 20120412
  2. LISINOPRIL [Concomitant]
     Indication: HYPERTENSION
     Route: 048
  3. ASPIRIN [Concomitant]
     Indication: CARDIAC DISORDER
     Route: 048
  4. OMEPRAZOLE [Concomitant]
     Indication: GASTROOESOPHAGEAL REFLUX DISEASE
     Route: 048
  5. INCIVEK [Suspect]
     Indication: HEPATITIS C
     Route: 048
     Dates: start: 20120412
  6. NOVALOG INSULUN 70/30 [Concomitant]
     Indication: DIABETES MELLITUS
     Route: 058
  7. RIBAVIRIN [Concomitant]
     Indication: HEPATITIS C
     Route: 048
     Dates: start: 20120412

REACTIONS (8)
  - DECREASED APPETITE [None]
  - INFLUENZA LIKE ILLNESS [None]
  - PYREXIA [None]
  - NAUSEA [None]
  - ARTHRALGIA [None]
  - CHILLS [None]
  - VOMITING [None]
  - HEADACHE [None]
